FAERS Safety Report 10246665 (Version 1)
Quarter: 2014Q2

REPORT INFORMATION
  Report Type: Spontaneous
  Country: CA (occurrence: CA)
  Receive Date: 20140619
  Receipt Date: 20140619
  Transmission Date: 20141212
  Serious: Yes (Other)
  Sender: FDA-Public Use
  Company Number: CA-PFIZER INC-2014164084

PATIENT
  Sex: 0

DRUGS (7)
  1. DOXORUBICIN HCL [Suspect]
     Dosage: 10 MG/M2, UNK
     Route: 065
  2. CISPLATIN [Suspect]
     Dosage: 10 MG/M2, UNK
     Route: 065
  3. CYCLOPHOSPHAMIDE [Suspect]
     Dosage: 400 MG/M2, UNK
     Route: 065
  4. DEXAMETHASONE [Suspect]
     Dosage: 40 MG, 4 EVERY 4 DAYS
     Route: 048
  5. ETOPOSIDE [Suspect]
     Dosage: 40 MG/M2, LIQUID INTRAVENOUS
     Route: 042
  6. THALOMID [Suspect]
     Dosage: ONCE DAILY
     Route: 048
  7. THALOMID [Suspect]
     Dosage: ONCE DAILY
     Route: 048

REACTIONS (51)
  - Bacterial sepsis [Unknown]
  - Bacterial sepsis [Unknown]
  - Cardiac failure congestive [Unknown]
  - Hepatosplenic candidiasis [Unknown]
  - Hyperbilirubinaemia [Unknown]
  - Sepsis [Unknown]
  - Neutropenic sepsis [Unknown]
  - Neutropenia [Unknown]
  - Febrile neutropenia [Unknown]
  - Neutropenic infection [Unknown]
  - Second primary malignancy [Unknown]
  - Plasma cell myeloma [Unknown]
  - Pneumonia [Unknown]
  - Pulmonary embolism [Unknown]
  - Rectal haemorrhage [Unknown]
  - Renal failure [Unknown]
  - Respiratory tract infection [Unknown]
  - Thrombosis in device [Unknown]
  - Upper gastrointestinal haemorrhage [Unknown]
  - Conjunctival haemorrhage [Unknown]
  - Anaemia [Unknown]
  - Catheter site haemorrhage [Unknown]
  - Constipation [Unknown]
  - Cough [Unknown]
  - Diarrhoea [Unknown]
  - Epistaxis [Unknown]
  - Failure to thrive [Unknown]
  - Fatigue [Unknown]
  - Haematuria [Unknown]
  - Hepatic enzyme increased [Unknown]
  - Herpes simplex [Unknown]
  - Hyperglycaemia [Unknown]
  - Hyperkalaemia [Unknown]
  - Hypocalcaemia [Unknown]
  - Hypokalaemia [Unknown]
  - Hypomagnesaemia [Unknown]
  - Hyponatraemia [Unknown]
  - Hypophosphataemia [Unknown]
  - Mouth haemorrhage [Unknown]
  - Mucosal inflammation [Unknown]
  - Nausea [Unknown]
  - Pain [Unknown]
  - Peripheral sensory neuropathy [Unknown]
  - Pneumonitis [Unknown]
  - Pyrexia [Unknown]
  - Rash [Unknown]
  - Skin infection [Unknown]
  - Skin infection [Unknown]
  - Supraventricular tachycardia [Unknown]
  - Thrombocytopenia [Unknown]
  - Vomiting [Unknown]
